FAERS Safety Report 16601196 (Version 1)
Quarter: 2019Q3

REPORT INFORMATION
  Report Type: Other
  Country: NL (occurrence: GR)
  Receive Date: 20190719
  Receipt Date: 20190719
  Transmission Date: 20191004
  Serious: Yes (Other)
  Sender: FDA-Public Use
  Company Number: NL-KOWA-19EU001898

PATIENT
  Age: 45 Year
  Sex: Male
  Weight: 82 kg

DRUGS (4)
  1. INEGY [Suspect]
     Active Substance: EZETIMIBE\SIMVASTATIN
     Indication: HYPERLIPIDAEMIA
     Dosage: 10 MG/ 40 MG
     Dates: start: 20150805, end: 20151207
  2. ANTORCIN [Suspect]
     Active Substance: ATORVASTATIN CALCIUM
     Indication: HYPERLIPIDAEMIA
     Dosage: 20 MG
     Dates: start: 20170202, end: 20170630
  3. LIPTRUZET [Suspect]
     Active Substance: ATORVASTATIN CALCIUM\EZETIMIBE
     Indication: HYPERLIPIDAEMIA
     Dates: start: 20170630, end: 20171127
  4. LIVAZO [Suspect]
     Active Substance: PITAVASTATIN CALCIUM
     Indication: HYPERLIPIDAEMIA
     Dates: start: 20150203, end: 20150804

REACTIONS (4)
  - Back pain [Unknown]
  - Myalgia [Unknown]
  - Vision blurred [Unknown]
  - Dizziness [Unknown]
